FAERS Safety Report 8451162-0 (Version None)
Quarter: 2012Q2

REPORT INFORMATION
  Report Type: 
  Country: None (occurrence: None)
  Receive Date: 20120620
  Receipt Date: 20120229
  Transmission Date: 20120825
  Serious: No
  Sender: FDA-Public Use
  Company Number: US-VERTEX PHARMACEUTICALS INC.-AE-2011-002808

PATIENT
  Sex: Female
  Weight: 64.014 kg

DRUGS (6)
  1. VITAMIN TAB [Concomitant]
     Route: 048
  2. RELAFEN [Concomitant]
     Indication: ARTHRITIS
     Route: 048
  3. INCIVEK [Suspect]
     Indication: HEPATITIS C
     Route: 048
     Dates: start: 20110920, end: 20111026
  4. HORMONE REPLACEMENT THERAPY [Concomitant]
  5. RIBAVIRIN [Concomitant]
     Indication: HEPATITIS C
     Route: 048
     Dates: start: 20110920
  6. PEGASYS [Concomitant]
     Indication: HEPATITIS C
     Route: 058
     Dates: start: 20110920

REACTIONS (1)
  - RASH PRURITIC [None]
